FAERS Safety Report 23364539 (Version 1)
Quarter: 2024Q1

REPORT INFORMATION
  Report Type: Report from Study
  Country: US (occurrence: US)
  Receive Date: 20240104
  Receipt Date: 20240104
  Transmission Date: 20240410
  Serious: Yes (Other)
  Sender: FDA-Public Use
  Company Number: US-VKT-000421

PATIENT
  Sex: Male

DRUGS (2)
  1. TADALAFIL [Suspect]
     Active Substance: TADALAFIL
     Indication: Erectile dysfunction
     Route: 065
  2. CITRULLINE [Suspect]
     Active Substance: CITRULLINE
     Indication: Erectile dysfunction
     Route: 065

REACTIONS (1)
  - Peyronie^s disease [Unknown]
